FAERS Safety Report 8557176-4 (Version None)
Quarter: 2012Q3

REPORT INFORMATION
  Report Type: 
  Country: None (occurrence: None)
  Receive Date: 20120801
  Receipt Date: 20120725
  Transmission Date: 20120928
  Serious: Yes (Other)
  Sender: FDA-Public Use
  Company Number: CA-ROCHE-1093721

PATIENT
  Sex: Male
  Weight: 106.69 kg

DRUGS (6)
  1. METHOTREXATE [Concomitant]
  2. HUMULIN R [Concomitant]
  3. PLAQUENIL [Concomitant]
  4. HUMULIN N [Concomitant]
  5. PREDNISONE [Concomitant]
  6. MABTHERA [Suspect]
     Indication: RHEUMATOID ARTHRITIS
     Route: 042
     Dates: start: 20120229, end: 20120314

REACTIONS (1)
  - CHRONIC OBSTRUCTIVE PULMONARY DISEASE [None]
